FAERS Safety Report 15992394 (Version 1)
Quarter: 2019Q1

REPORT INFORMATION
  Report Type: Spontaneous
  Country: US (occurrence: US)
  Receive Date: 20190221
  Receipt Date: 20190221
  Transmission Date: 20190418
  Serious: No
  Sender: FDA-Public Use
  Company Number: US-ALLERGAN-1805434US

PATIENT
  Age: 3 Year

DRUGS (1)
  1. OXYTROL [Suspect]
     Active Substance: OXYBUTYNIN
     Indication: ENURESIS
     Dosage: 0.5 DF, (EVERY 4 DAYS)
     Route: 062

REACTIONS (2)
  - Off label use [Unknown]
  - Product prescribing error [Unknown]
